FAERS Safety Report 17414530 (Version 1)
Quarter: 2020Q1

REPORT INFORMATION
  Report Type: Spontaneous
  Country: NL (occurrence: NL)
  Receive Date: 20200213
  Receipt Date: 20200213
  Transmission Date: 20200409
  Serious: Yes (Other)
  Sender: FDA-Public Use
  Company Number: NL-PFIZER INC-2020049113

PATIENT
  Sex: Female

DRUGS (2)
  1. IBUPROFEN. [Suspect]
     Active Substance: IBUPROFEN
     Dosage: ENORMOUS AMOUNTS
  2. PARACETAMOL [Suspect]
     Active Substance: ACETAMINOPHEN
     Dosage: ENORMOUS AMOUNTS

REACTIONS (2)
  - Toxicity to various agents [Unknown]
  - Malaise [Unknown]
